FAERS Safety Report 7243417-2 (Version None)
Quarter: 2011Q1

REPORT INFORMATION
  Report Type: 
  Country: None (occurrence: None)
  Receive Date: 20110125
  Receipt Date: 20110120
  Transmission Date: 20110831
  Serious: Yes (Other)
  Sender: FDA-Public Use
  Company Number: AU-ASTRAZENECA-2011SE03182

PATIENT
  Age: 59 Year
  Sex: Female

DRUGS (9)
  1. QUETIAPINE [Suspect]
     Route: 048
  2. OLANZAPINE [Suspect]
     Indication: SCHIZOPHRENIA
  3. PERICYAZINE [Concomitant]
     Indication: PSYCHOTIC DISORDER
  4. QUETIAPINE [Suspect]
     Route: 048
  5. QUETIAPINE [Suspect]
     Indication: SCHIZOPHRENIA
     Route: 048
  6. ARIPIPRAZOLE [Suspect]
     Indication: SCHIZOPHRENIA
  7. AMISULPRIDE [Concomitant]
     Indication: PSYCHOTIC DISORDER
  8. RISPERIDONE [Concomitant]
     Indication: PSYCHOTIC DISORDER
  9. ZUCLOPENTHIXOL [Concomitant]
     Indication: PSYCHOTIC DISORDER

REACTIONS (2)
  - NEUTROPENIA [None]
  - LEUKOPENIA [None]
